FAERS Safety Report 5245812-X (Version None)
Quarter: 2007Q1

REPORT INFORMATION
  Report Type: 
  Country: None (occurrence: None)
  Receive Date: 20070216
  Receipt Date: 20070205
  Transmission Date: 20070707
  Serious: Yes (Other)
  Sender: FDA-Public Use
  Company Number: 2006BI002805

PATIENT
  Age: 63 Year
  Sex: Female

DRUGS (2)
  1. AVONEX [Suspect]
     Indication: MULTIPLE SCLEROSIS
     Dosage: 30 UG; IM
     Route: 030
  2. BETASERON [Concomitant]

REACTIONS (5)
  - BREAST CANCER FEMALE [None]
  - COORDINATION ABNORMAL [None]
  - ECHOCARDIOGRAM ABNORMAL [None]
  - FATIGUE [None]
  - GAIT DISTURBANCE [None]
